FAERS Safety Report 7106250-8 (Version None)
Quarter: 2010Q4

REPORT INFORMATION
  Report Type: 
  Country: None (occurrence: None)
  Receive Date: 20101116
  Receipt Date: 20101021
  Transmission Date: 20110411
  Serious: Yes (Other)
  Sender: FDA-Public Use
  Company Number: GB-AMGEN-GBRCT2010001057

PATIENT

DRUGS (5)
  1. ETANERCEPT [Suspect]
     Indication: RHEUMATOID ARTHRITIS
     Dosage: 25 MG, 2 TIMES/WK
     Dates: start: 20060421
  2. FOSAMAX [Concomitant]
     Dosage: UNKNOWN
  3. FOLIC ACID [Concomitant]
     Dosage: UNKNOWN
  4. METHOTREXATE [Concomitant]
     Dosage: UNKNOWN
  5. PREDNISOLONE [Concomitant]
     Dosage: UNKNOWN

REACTIONS (1)
  - SKIN CANCER [None]
